FAERS Safety Report 22216951 (Version 2)
Quarter: 2023Q2

REPORT INFORMATION
  Report Type: Report from Study
  Country: US (occurrence: US)
  Receive Date: 20230417
  Receipt Date: 20230427
  Transmission Date: 20230721
  Serious: Yes (Other)
  Sender: FDA-Public Use
  Company Number: US-GILEAD-2023-0624495

PATIENT
  Sex: Female

DRUGS (28)
  1. AZTREONAM LYSINE [Suspect]
     Active Substance: AZTREONAM LYSINE
     Indication: Cystic fibrosis
     Dosage: UNK
     Route: 065
     Dates: start: 20160122
  2. AZTREONAM LYSINE [Suspect]
     Active Substance: AZTREONAM LYSINE
     Indication: Infective pulmonary exacerbation of cystic fibrosis
     Dosage: INHALE 75 MG 3 TIMES DAILY FOR 28 DAYS ON AND 28 DAYS OFF
     Route: 065
  3. AZTREONAM LYSINE [Suspect]
     Active Substance: AZTREONAM LYSINE
     Indication: Pseudomonas infection
  4. TRIKAFTA [Concomitant]
     Active Substance: ELEXACAFTOR\IVACAFTOR\TEZACAFTOR
  5. PULMOZYME [Concomitant]
     Active Substance: DORNASE ALFA
  6. TOUJEO MAX [Concomitant]
     Active Substance: INSULIN GLARGINE
  7. CREON [Concomitant]
     Active Substance: PANCRELIPASE AMYLASE\PANCRELIPASE LIPASE\PANCRELIPASE PROTEASE
  8. FUROSEMIDE [Concomitant]
     Active Substance: FUROSEMIDE
  9. TOBRAMYCIN [Concomitant]
     Active Substance: TOBRAMYCIN
  10. LEVALBUTEROL [Concomitant]
     Active Substance: LEVALBUTEROL
  11. EPINEPHRINE [Concomitant]
     Active Substance: EPINEPHRINE
  12. RIZATRIPTAN [Concomitant]
     Active Substance: RIZATRIPTAN
  13. PULMICORT FLEXHALER [Concomitant]
     Active Substance: BUDESONIDE
  14. IBUPROFEN [Concomitant]
     Active Substance: IBUPROFEN
  15. LOSARTAN POTASSIUM [Concomitant]
     Active Substance: LOSARTAN POTASSIUM
  16. OXYCODONE [Concomitant]
     Active Substance: OXYCODONE
  17. AMILORIDE [Concomitant]
     Active Substance: AMILORIDE
  18. LEVOTHYROXINE [Concomitant]
     Active Substance: LEVOTHYROXINE
  19. ATROVENT [Concomitant]
     Active Substance: IPRATROPIUM BROMIDE
  20. MONTELUKAST SODIUM [Concomitant]
     Active Substance: MONTELUKAST SODIUM
  21. FAMOTIDINE [Concomitant]
     Active Substance: FAMOTIDINE
  22. AZITHROMYCIN [Concomitant]
     Active Substance: AZITHROMYCIN
  23. XOLAIR [Concomitant]
     Active Substance: OMALIZUMAB
  24. TYLENOL [Concomitant]
     Active Substance: ACETAMINOPHEN
  25. SUMATRIPTAN SUCCINATE [Concomitant]
     Active Substance: SUMATRIPTAN SUCCINATE
  26. PREVACID [Concomitant]
     Active Substance: LANSOPRAZOLE
  27. INSULIN ASPART [Concomitant]
     Active Substance: INSULIN ASPART
  28. MAGNESIUM [Concomitant]
     Active Substance: MAGNESIUM

REACTIONS (4)
  - Diabetes mellitus [Not Recovered/Not Resolved]
  - Upper respiratory tract infection [Unknown]
  - Wrist fracture [Unknown]
  - Nasopharyngitis [Unknown]
